FAERS Safety Report 10479697 (Version 2)
Quarter: 2014Q4

REPORT INFORMATION
  Report Type: Spontaneous
  Country: GB (occurrence: GB)
  Receive Date: 20140927
  Receipt Date: 20141007
  Transmission Date: 20150528
  Serious: Yes (Death, Hospitalization)
  Sender: FDA-Public Use
  Company Number: PHFR2014GB006452

PATIENT
  Age: 88 Year
  Sex: Female

DRUGS (3)
  1. CLOZARIL [Suspect]
     Active Substance: CLOZAPINE
     Indication: SCHIZOPHRENIA
     Dosage: 100 MG (MORNING)/ 200MG (EVENING)
     Route: 048
     Dates: start: 19981022
  2. CLOZARIL [Suspect]
     Active Substance: CLOZAPINE
     Dosage: 100 MG (MORNING)/ 200MG (EVENING)
     Dates: start: 20010701
  3. CLOZARIL [Suspect]
     Active Substance: CLOZAPINE
     Dosage: 100 MG, BID
     Route: 048

REACTIONS (6)
  - Death [Fatal]
  - White blood cell count increased [Recovered/Resolved]
  - Neutrophil count increased [Recovered/Resolved]
  - Fall [Unknown]
  - Somnolence [Unknown]
  - Platelet count increased [Unknown]

NARRATIVE: CASE EVENT DATE: 20140528
